FAERS Safety Report 18623575 (Version 1)
Quarter: 2020Q4

REPORT INFORMATION
  Report Type: Spontaneous
  Country: US (occurrence: US)
  Receive Date: 20201216
  Receipt Date: 20201216
  Transmission Date: 20210114
  Serious: Yes (Life-Threatening, Other)
  Sender: FDA-Public Use
  Company Number: US-PFIZER INC-2020494054

PATIENT
  Age: 47 Year
  Sex: Male
  Weight: 64.99 kg

DRUGS (19)
  1. DOLUTEGRAVIR [Suspect]
     Active Substance: DOLUTEGRAVIR
     Indication: HIV INFECTION
     Dosage: 50 MG, 1X/DAY
     Route: 048
     Dates: start: 20201001
  2. BEDAQUILINE [Concomitant]
     Active Substance: BEDAQUILINE
     Indication: TUBERCULOSIS
     Dosage: UNK
     Dates: start: 20201002
  3. LINEZOLID. [Suspect]
     Active Substance: LINEZOLID
     Indication: TUBERCULOSIS
     Dosage: 600 MG, 1X/DAY
     Route: 048
     Dates: start: 20200917, end: 20201117
  4. SPIRONOLACTON [Concomitant]
     Active Substance: SPIRONOLACTONE
     Indication: BUNDLE BRANCH BLOCK LEFT
  5. BISOPROLOL [Concomitant]
     Active Substance: BISOPROLOL
     Indication: BUNDLE BRANCH BLOCK LEFT
  6. COTRIMOXAZOL AL [Concomitant]
     Active Substance: SULFAMETHOXAZOLE\TRIMETHOPRIM
     Indication: HIV INFECTION
     Dosage: UNK
     Dates: start: 20200917
  7. LINEZOLID. [Suspect]
     Active Substance: LINEZOLID
     Dosage: 300 MG, 1X/DAY
     Route: 048
     Dates: start: 20201120
  8. CYCLOSERINE. [Suspect]
     Active Substance: CYCLOSERINE
     Indication: TUBERCULOSIS
     Dosage: 750 MG, 1X/DAY
     Route: 048
     Dates: start: 20200917, end: 20201111
  9. SOFOSBUVIR [Suspect]
     Active Substance: SOFOSBUVIR
     Indication: HEPATITIS C
     Dosage: 400 MG, 1X/DAY
     Route: 048
     Dates: start: 20200902
  10. SPIRONOLACTON [Concomitant]
     Active Substance: SPIRONOLACTONE
     Indication: ANGINA PECTORIS
     Dosage: UNK
     Dates: start: 20200819
  11. FOLIC ACID. [Concomitant]
     Active Substance: FOLIC ACID
     Indication: ANAEMIA
     Dosage: UNK
     Dates: start: 20200918
  12. DELAMANID [Suspect]
     Active Substance: DELAMANID
     Indication: TUBERCULOSIS
     Dosage: 200 MG, 1X/DAY
     Route: 048
     Dates: start: 20200917
  13. KLOPIDOGREL [Concomitant]
     Indication: BUNDLE BRANCH BLOCK LEFT
  14. BISOPROLOL [Concomitant]
     Active Substance: BISOPROLOL
     Indication: ANGINA PECTORIS
     Dosage: UNK
     Dates: start: 20200819
  15. ENTEROSEPT [DIIODOHYDROXYQUINOLINE] [Concomitant]
     Indication: DIARRHOEA
     Dosage: UNK
     Dates: start: 20201002
  16. DUOVIR [Concomitant]
     Indication: HIV INFECTION
     Dosage: UNK
     Dates: start: 20201001
  17. CLOFAZIMINE [Concomitant]
     Active Substance: CLOFAZIMINE
     Indication: TUBERCULOSIS
     Dosage: UNK
     Dates: start: 20200917
  18. KLOPIDOGREL [Concomitant]
     Indication: ANGINA PECTORIS
     Dosage: UNK
     Dates: start: 20200819
  19. DACLATASVIR. [Concomitant]
     Active Substance: DACLATASVIR
     Indication: HIV INFECTION
     Dosage: UNK
     Dates: start: 20200902

REACTIONS (9)
  - Anaemia [Recovering/Resolving]
  - Pituitary tumour benign [Unknown]
  - Cerebral atrophy [Unknown]
  - Metabolic encephalopathy [Unknown]
  - Cerebral microangiopathy [Unknown]
  - Epilepsy [Unknown]
  - Gastric disorder [Unknown]
  - Polyneuropathy [Unknown]
  - White matter lesion [Unknown]
